FAERS Safety Report 15293966 (Version 1)
Quarter: 2018Q3

REPORT INFORMATION
  Report Type: Spontaneous
  Country: US (occurrence: US)
  Receive Date: 20180807
  Receipt Date: 20180807
  Transmission Date: 20181010
  Serious: Yes (Other)
  Sender: FDA-Public Use
  Company Number: None

PATIENT
  Age: 66 Year
  Sex: Female
  Weight: 49.95 kg

DRUGS (4)
  1. SYNTHROID [Concomitant]
     Active Substance: LEVOTHYROXINE SODIUM
  2. LOW DOSE ASPIRIN [Concomitant]
     Active Substance: ASPIRIN
  3. CALCIUM SUPPLEMENTS [Concomitant]
     Active Substance: CALCIUM
  4. RISEDRONATE SODIUM 150 MG TAB [Suspect]
     Active Substance: RISEDRONATE SODIUM
     Indication: OSTEOPOROSIS
     Dosage: ?          QUANTITY:1 DF DOSAGE FORM;OTHER FREQUENCY:MONTHLY;?
     Route: 048
     Dates: start: 20180731, end: 20180731

REACTIONS (13)
  - Ill-defined disorder [None]
  - Paraesthesia [None]
  - Nausea [None]
  - Joint effusion [None]
  - Decreased appetite [None]
  - Drug ineffective [None]
  - Pyrexia [None]
  - Headache [None]
  - Dyspepsia [None]
  - Epinephrine increased [None]
  - Chills [None]
  - Pain [None]
  - Muscle spasms [None]

NARRATIVE: CASE EVENT DATE: 20180731
